FAERS Safety Report 7915825-5 (Version None)
Quarter: 2011Q4

REPORT INFORMATION
  Report Type: 
  Country: None (occurrence: None)
  Receive Date: 20111115
  Receipt Date: 20111109
  Transmission Date: 20120403
  Serious: Yes (Other)
  Sender: FDA-Public Use
  Company Number: CHPA2011US015812

PATIENT
  Age: 44 Year
  Sex: Male

DRUGS (1)
  1. TRANSDERM SCOP [Suspect]
     Indication: SALIVARY HYPERSECRETION
     Dosage: 1 DF, Q72H
     Route: 062
     Dates: start: 20090101

REACTIONS (3)
  - AMYOTROPHIC LATERAL SCLEROSIS [None]
  - DISEASE PROGRESSION [None]
  - OFF LABEL USE [None]
